FAERS Safety Report 7968203-7 (Version None)
Quarter: 2011Q4

REPORT INFORMATION
  Report Type: 
  Country: None (occurrence: None)
  Receive Date: 20111209
  Receipt Date: 20111130
  Transmission Date: 20120403
  Serious: Yes (Other)
  Sender: FDA-Public Use
  Company Number: FR-BRISTOL-MYERS SQUIBB COMPANY-16277527

PATIENT
  Sex: Female

DRUGS (7)
  1. EFFERALGAN CODEINE EFFER TABS [Suspect]
     Indication: PARONYCHIA
     Dates: start: 20081210, end: 20081231
  2. KETOPROFEN [Suspect]
     Indication: PARONYCHIA
     Dates: start: 20081210, end: 20081231
  3. PROPOFAN [Suspect]
     Indication: PARONYCHIA
     Dosage: TAB
     Dates: start: 20081210, end: 20081231
  4. ACETAMINOPHEN [Suspect]
     Indication: PARONYCHIA
     Dosage: FORMULATION:KLIPAL 500 MG SCORED TABLET
     Dates: start: 20081210, end: 20081231
  5. PYOSTACINE [Suspect]
     Indication: PARONYCHIA
     Dates: start: 20081201, end: 20081210
  6. FUNGIZONE [Suspect]
     Indication: PARONYCHIA
     Dates: start: 20081222
  7. MONUROL [Suspect]
     Indication: URINARY TRACT INFECTION
     Dosage: MONURIL ADULT GRANULES FOR ORAL SOLUTION IN SACHETS
     Dates: start: 20081221

REACTIONS (2)
  - ABORTION INDUCED [None]
  - PREGNANCY [None]
